FAERS Safety Report 14331528 (Version 1)
Quarter: 2017Q4

REPORT INFORMATION
  Report Type: Spontaneous
  Country: SA (occurrence: SA)
  Receive Date: 20171228
  Receipt Date: 20171228
  Transmission Date: 20180321
  Serious: Yes (Other)
  Sender: FDA-Public Use
  Company Number: SA-LUPIN PHARMACEUTICALS INC.-2017-07514

PATIENT
  Age: 27 Year
  Sex: Female

DRUGS (2)
  1. MISOPROSTOL. [Suspect]
     Active Substance: MISOPROSTOL
     Indication: ANEMBRYONIC GESTATION
     Dosage: 400 ?G, UNK
     Route: 048
  2. MISOPROSTOL. [Suspect]
     Active Substance: MISOPROSTOL
     Dosage: 400 ?G, UNK
     Route: 067

REACTIONS (4)
  - Ruptured ectopic pregnancy [Recovering/Resolving]
  - Haemoglobin decreased [Recovering/Resolving]
  - Peritoneal haemorrhage [Recovering/Resolving]
  - Hypotension [Recovering/Resolving]
